FAERS Safety Report 25271692 (Version 1)
Quarter: 2025Q2

REPORT INFORMATION
  Report Type: Report from Study
  Country: US (occurrence: US)
  Receive Date: 20250506
  Receipt Date: 20250506
  Transmission Date: 20250716
  Serious: Yes (Other)
  Sender: ABBVIE
  Company Number: US-ABBVIE-6265039

PATIENT
  Sex: Female

DRUGS (1)
  1. IMBRUVICA [Suspect]
     Active Substance: IBRUTINIB
     Indication: Chronic lymphocytic leukaemia
     Route: 048
     Dates: start: 202208

REACTIONS (7)
  - Macular degeneration [Unknown]
  - Breast mass [Unknown]
  - Arthralgia [Unknown]
  - Palpitations [Unknown]
  - Ear pain [Unknown]
  - Bruxism [Unknown]
  - Renal function test abnormal [Unknown]
